FAERS Safety Report 9312955 (Version 1)
Quarter: 2013Q2

REPORT INFORMATION
  Report Type: Spontaneous
  Country: US (occurrence: US)
  Receive Date: 20130528
  Receipt Date: 20130528
  Transmission Date: 20140414
  Serious: No
  Sender: FDA-Public Use
  Company Number: US-ABBOTT-13P-163-1069131-00

PATIENT
  Age: 36 Year
  Sex: Male
  Weight: 95.34 kg

DRUGS (5)
  1. ANDROGEL [Suspect]
     Indication: BLOOD TESTOSTERONE DECREASED
     Dosage: 4 PUMPS DAILY
     Route: 061
     Dates: start: 201302, end: 201303
  2. ANDROGEL [Suspect]
     Indication: FIBROMYALGIA
     Dosage: 6 PUMPS DAILY
     Route: 061
     Dates: start: 201303
  3. TRAZODONE [Concomitant]
     Indication: MIGRAINE
  4. FIORICET [Concomitant]
     Indication: MIGRAINE
  5. FIORICET [Concomitant]
     Indication: NEURALGIA

REACTIONS (2)
  - Therapeutic response unexpected [Not Recovered/Not Resolved]
  - Off label use [Recovering/Resolving]
